FAERS Safety Report 7144978-4 (Version None)
Quarter: 2010Q4

REPORT INFORMATION
  Report Type: 
  Country: None (occurrence: None)
  Receive Date: 20101122
  Receipt Date: 20101116
  Transmission Date: 20110411
  Serious: Yes (Life-Threatening, Hospitalization)
  Sender: FDA-Public Use
  Company Number: 2010SP060419

PATIENT
  Age: 32 Year
  Sex: Female
  Weight: 69.4003 kg

DRUGS (2)
  1. DESOGESTREL/ETHINYL ESTRADIOL [Suspect]
     Indication: PRODUCT USED FOR UNKNOWN INDICATION
     Dosage: 1 DF;QD;PO
     Route: 048
  2. AVIANE-21 [Suspect]
     Indication: PRODUCT USED FOR UNKNOWN INDICATION
     Dosage: PO
     Route: 048

REACTIONS (6)
  - DYSPNOEA [None]
  - HYPOTENSION [None]
  - LIVEDO RETICULARIS [None]
  - PALPITATIONS [None]
  - PULMONARY EMBOLISM [None]
  - SINUS TACHYCARDIA [None]
